FAERS Safety Report 25481099 (Version 1)
Quarter: 2025Q2

REPORT INFORMATION
  Report Type: Spontaneous
  Country: JP (occurrence: JP)
  Receive Date: 20250626
  Receipt Date: 20250626
  Transmission Date: 20250716
  Serious: Yes (Hospitalization, Other)
  Sender: JOHNSON AND JOHNSON
  Company Number: JP-JNJFOC-20250614758

PATIENT
  Age: 78 Year
  Sex: Male

DRUGS (2)
  1. ERLEADA [Suspect]
     Active Substance: APALUTAMIDE
     Indication: Prostate cancer metastatic
     Route: 048
     Dates: start: 20250402, end: 20250521
  2. DEGARELIX [Concomitant]
     Active Substance: DEGARELIX
     Indication: Prostate cancer metastatic
     Route: 048
     Dates: start: 20250307, end: 20250604

REACTIONS (6)
  - Rash [Not Recovered/Not Resolved]
  - Dermatitis exfoliative generalised [Recovering/Resolving]
  - Punctate keratitis [Recovering/Resolving]
  - Prostatic specific antigen increased [Unknown]
  - Lymphadenopathy [Unknown]
  - Blepharitis [Recovering/Resolving]

NARRATIVE: CASE EVENT DATE: 20250101
